FAERS Safety Report 17354438 (Version 1)
Quarter: 2020Q1

REPORT INFORMATION
  Report Type: Spontaneous
  Country: US (occurrence: US)
  Receive Date: 20200130
  Receipt Date: 20200130
  Transmission Date: 20200409
  Serious: Yes (Other)
  Sender: FDA-Public Use
  Company Number: None

PATIENT
  Sex: Female

DRUGS (1)
  1. GENERIC OF CRESTOR 20MG TABLETS (HUMANA) [Suspect]
     Active Substance: ROSUVASTATIN CALCIUM

REACTIONS (1)
  - Therapy non-responder [None]
